FAERS Safety Report 11912950 (Version 2)
Quarter: 2016Q1

REPORT INFORMATION
  Report Type: Spontaneous
  Country: US (occurrence: US)
  Receive Date: 20160113
  Receipt Date: 20160209
  Transmission Date: 20160526
  Serious: Yes (Other)
  Sender: FDA-Public Use
  Company Number: US-BAYER-2016-006596

PATIENT
  Age: 7 Year
  Sex: Male
  Weight: 14.06 kg

DRUGS (2)
  1. GADAVIST [Suspect]
     Active Substance: GADOBUTROL
     Indication: OSTEOMYELITIS
  2. GADAVIST [Suspect]
     Active Substance: GADOBUTROL
     Indication: ARTHROGRAM
     Dosage: 3.1 ML, ONCE
     Route: 042
     Dates: start: 20160109, end: 20160109

REACTIONS (7)
  - Swelling face [Recovered/Resolved]
  - Lip swelling [Recovered/Resolved]
  - Pruritus [Recovered/Resolved]
  - Oral discomfort [Recovered/Resolved]
  - Off label use [None]
  - Mouth swelling [Recovered/Resolved]
  - Urticaria [Recovered/Resolved]

NARRATIVE: CASE EVENT DATE: 20160109
